FAERS Safety Report 6789034-X (Version None)
Quarter: 2010Q2

REPORT INFORMATION
  Report Type: 
  Country: None (occurrence: None)
  Receive Date: 20100623
  Receipt Date: 20080630
  Transmission Date: 20101027
  Serious: Yes (Other)
  Sender: FDA-Public Use
  Company Number: US-PFIZER INC-2008051400

PATIENT
  Sex: Female
  Weight: 47 kg

DRUGS (2)
  1. DEPO-PROVERA SUSPENSION/INJ [Suspect]
     Indication: OFF LABEL USE
     Dosage: FIRST INJECTION
     Dates: start: 20040101, end: 20040101
  2. DEPO-PROVERA SUSPENSION/INJ [Suspect]
     Indication: UTERINE LEIOMYOMA
     Dosage: LAST INJECTION
     Dates: start: 20070915, end: 20070915

REACTIONS (8)
  - BREAST CANCER [None]
  - DEPRESSED MOOD [None]
  - DYSPNOEA [None]
  - FATIGUE [None]
  - HOT FLUSH [None]
  - OEDEMA PERIPHERAL [None]
  - SKIN DISCOLOURATION [None]
  - YELLOW SKIN [None]
